FAERS Safety Report 6642025-1 (Version None)
Quarter: 2010Q1

REPORT INFORMATION
  Report Type: 
  Country: None (occurrence: None)
  Receive Date: 20100319
  Receipt Date: 20100312
  Transmission Date: 20100710
  Serious: Yes (Hospitalization, Other)
  Sender: FDA-Public Use
  Company Number: US-BAYER-201013036BCC

PATIENT
  Age: 75 Year
  Sex: Male

DRUGS (4)
  1. ASPIRIN [Suspect]
     Indication: STENT PLACEMENT
     Route: 048
     Dates: start: 20030101
  2. PLAVIX [Suspect]
     Indication: STENT PLACEMENT
     Route: 048
     Dates: start: 20030101
  3. OMEPRAZOLE [Concomitant]
     Indication: GASTRIC DISORDER
     Dates: start: 20091117
  4. PANTOPRAZOLE [Concomitant]
     Indication: GASTRIC DISORDER

REACTIONS (2)
  - GASTRIC DISORDER [None]
  - PERFORATED ULCER [None]
